FAERS Safety Report 20651189 (Version 1)
Quarter: 2022Q1

REPORT INFORMATION
  Report Type: Report from Study
  Country: CA (occurrence: CA)
  Receive Date: 20220329
  Receipt Date: 20220329
  Transmission Date: 20220423
  Serious: Yes (Death, Other)
  Sender: FDA-Public Use
  Company Number: CA-BoehringerIngelheim-2022-BI-162219

PATIENT
  Age: 78 Year
  Sex: Male

DRUGS (1)
  1. GILOTRIF [Suspect]
     Active Substance: AFATINIB
     Indication: Product used for unknown indication
     Route: 048
     Dates: start: 20220204, end: 20220325

REACTIONS (1)
  - Death [Fatal]

NARRATIVE: CASE EVENT DATE: 20220325
